FAERS Safety Report 5055767-9 (Version None)
Quarter: 2006Q3

REPORT INFORMATION
  Report Type: 
  Country: None (occurrence: None)
  Receive Date: 20060714
  Receipt Date: 20060622
  Transmission Date: 20061208
  Serious: Yes (Other)
  Sender: FDA-Public Use
  Company Number: 2006-07-0462

PATIENT
  Age: 49 Year
  Sex: Female

DRUGS (4)
  1. PEG-INTRON [Suspect]
     Indication: HEPATITIS B
     Dosage: SUBCUTANEOUS
     Route: 058
     Dates: start: 20051118, end: 20060520
  2. PEG-INTRON [Suspect]
     Indication: HEPATITIS C
     Dosage: SUBCUTANEOUS
     Route: 058
     Dates: start: 20051118, end: 20060520
  3. RIBAVIRIN [Suspect]
     Indication: HEPATITIS B
     Dosage: ORAL
     Route: 048
     Dates: start: 20051118, end: 20060520
  4. RIBAVIRIN [Suspect]
     Indication: HEPATITIS C
     Dosage: ORAL
     Route: 048
     Dates: start: 20051118, end: 20060520

REACTIONS (10)
  - ALOPECIA [None]
  - ASTHMA [None]
  - BONE PAIN [None]
  - LIBIDO DECREASED [None]
  - MEMORY IMPAIRMENT [None]
  - NASOPHARYNGITIS [None]
  - ONYCHOMYCOSIS [None]
  - PRODUCTIVE COUGH [None]
  - SPUTUM DISCOLOURED [None]
  - WHEEZING [None]
